FAERS Safety Report 16183615 (Version 1)
Quarter: 2019Q2

REPORT INFORMATION
  Report Type: Spontaneous
  Country: US (occurrence: US)
  Receive Date: 20190411
  Receipt Date: 20190411
  Transmission Date: 20190711
  Serious: Yes (Other)
  Sender: FDA-Public Use
  Company Number: US-SA-2019SA097015

PATIENT
  Age: 33 Year
  Sex: Female

DRUGS (5)
  1. ZOLPIDEM TARTRATE. [Suspect]
     Active Substance: ZOLPIDEM TARTRATE
  2. OXYCODONE [Suspect]
     Active Substance: OXYCODONE
     Dosage: UNK, INJECTED
  3. HYDROMORPHONE [Suspect]
     Active Substance: HYDROMORPHONE
  4. OXYMORPHONE [Suspect]
     Active Substance: OXYMORPHONE
  5. DIPHENHYDRAMINE HYDROCHLORIDE. [Suspect]
     Active Substance: DIPHENHYDRAMINE HYDROCHLORIDE

REACTIONS (7)
  - Unresponsive to stimuli [Unknown]
  - Disorientation [Unknown]
  - Feeling abnormal [Unknown]
  - Miosis [Unknown]
  - Pupil fixed [Unknown]
  - Road traffic accident [Unknown]
  - Dysarthria [Unknown]
